FAERS Safety Report 6055731-7 (Version None)
Quarter: 2009Q1

REPORT INFORMATION
  Report Type: 
  Country: None (occurrence: None)
  Receive Date: 20090126
  Receipt Date: 20090113
  Transmission Date: 20090719
  Serious: Yes (Death)
  Sender: FDA-Public Use
  Company Number: 1000003593

PATIENT
  Age: 59 Year
  Sex: Female

DRUGS (4)
  1. ESCITALOPRAM [Suspect]
  2. SERESTA [Concomitant]
  3. FOLIC ACID [Concomitant]
  4. VITAMIN PP [Concomitant]

REACTIONS (2)
  - CEREBROVASCULAR ACCIDENT [None]
  - MENINGORRHAGIA [None]
